FAERS Safety Report 9419735 (Version 2)
Quarter: 2013Q3

REPORT INFORMATION
  Report Type: Spontaneous
  Country: US (occurrence: None)
  Receive Date: 20130723
  Receipt Date: 20130806
  Transmission Date: 20140515
  Serious: Yes (Death, Other)
  Sender: FDA-Public Use
  Company Number: 2013P1011922

PATIENT
  Age: 72 Year
  Sex: Female
  Weight: 63.5 kg

DRUGS (1)
  1. INFUMORPH [Suspect]
     Dates: start: 201306, end: 20130721

REACTIONS (5)
  - Fall [None]
  - Confusional state [None]
  - Pain [None]
  - Investigation [None]
  - Metastatic neoplasm [None]
